FAERS Safety Report 9375650 (Version 2)
Quarter: 2013Q3

REPORT INFORMATION
  Report Type: Report from Study
  Country: CA (occurrence: CA)
  Receive Date: 20130628
  Receipt Date: 20130708
  Transmission Date: 20140515
  Serious: Yes (Disabling, Other)
  Sender: FDA-Public Use
  Company Number: CA-PFIZER INC-2013187448

PATIENT
  Age: 59 Year
  Sex: Female
  Weight: 68.2 kg

DRUGS (5)
  1. GEMCITABINE [Suspect]
     Indication: NON-HODGKIN^S LYMPHOMA
     Dosage: 860 MG, EVERY 3 WEEKS
     Route: 042
     Dates: start: 20130123, end: 20130410
  2. INOTUZUMAB OZOGAMICIN [Suspect]
     Indication: NON-HODGKIN^S LYMPHOMA
     Dosage: 1.38 MG, EVERY 3 WEEKS
     Route: 042
     Dates: start: 20130123, end: 20130411
  3. CISPLATIN [Suspect]
     Indication: NON-HODGKIN^S LYMPHOMA
     Dosage: 86 MG, EVERY 3 WEEKS
     Route: 042
     Dates: start: 20130123, end: 20130410
  4. RITUXIMAB [Suspect]
     Indication: NON-HODGKIN^S LYMPHOMA
     Dosage: 645 MG, EVERY 3 WEEKS
     Route: 042
     Dates: start: 20130123, end: 20130410
  5. DEXAMETHASONE ACETATE [Suspect]
     Indication: NON-HODGKIN^S LYMPHOMA
     Dosage: 40 MG, 4 DAYS EVERY 3 WEEKS
     Route: 048
     Dates: start: 20130123, end: 20130413

REACTIONS (1)
  - Venoocclusive disease [Recovering/Resolving]
